FAERS Safety Report 12469430 (Version 3)
Quarter: 2017Q4

REPORT INFORMATION
  Report Type: Report from Study
  Country: US (occurrence: US)
  Receive Date: 20160615
  Receipt Date: 20171017
  Transmission Date: 20180320
  Serious: No
  Sender: FDA-Public Use
  Company Number: US-BIOMARINAP-US-2016-110135

PATIENT
  Sex: Female

DRUGS (2)
  1. KUVAN [Suspect]
     Active Substance: SAPROPTERIN DIHYDROCHLORIDE
     Indication: PHENYLKETONURIA
     Dosage: 13 MG/KG, QD
     Route: 048
     Dates: start: 20161207
  2. KUVAN [Suspect]
     Active Substance: SAPROPTERIN DIHYDROCHLORIDE
     Dosage: 750 MG, QD
     Route: 048

REACTIONS (2)
  - Vomiting in pregnancy [Recovered/Resolved]
  - Maternal exposure during pregnancy [Recovered/Resolved]
